FAERS Safety Report 15859131 (Version 3)
Quarter: 2019Q1

REPORT INFORMATION
  Report Type: Spontaneous
  Country: JP (occurrence: JP)
  Receive Date: 20190123
  Receipt Date: 20190225
  Transmission Date: 20190417
  Serious: Yes (Life-Threatening, Hospitalization)
  Sender: FDA-Public Use
  Company Number: JP-ALLERGAN-1902843US

PATIENT
  Age: 77 Year
  Sex: Male

DRUGS (7)
  1. SILODOSIN - BP [Suspect]
     Active Substance: SILODOSIN
     Indication: BENIGN PROSTATIC HYPERPLASIA
     Dosage: 4 MG, BID
     Route: 048
     Dates: start: 20181112, end: 20181203
  2. PENTCILLIN [Suspect]
     Active Substance: PIPERACILLIN SODIUM
     Indication: HAND FRACTURE
     Dosage: 4 G, UNK
     Route: 042
  3. PIPERACILLIN SODIUM [Suspect]
     Active Substance: PIPERACILLIN SODIUM
     Dosage: 2 G, UNK
     Route: 042
     Dates: start: 20181210, end: 20181210
  4. TEGRETOL [Concomitant]
     Active Substance: CARBAMAZEPINE
     Indication: EPILEPSY
     Dosage: 200 MG, A DAY
     Route: 048
     Dates: start: 20181109, end: 20181215
  5. LOXOPROFEN [Concomitant]
     Active Substance: LOXOPROFEN
     Indication: HAND FRACTURE
     Dosage: 180 MG, QD
     Route: 048
     Dates: start: 20181210, end: 20181216
  6. REBAMIPIDE [Concomitant]
     Active Substance: REBAMIPIDE
     Indication: HAND FRACTURE
     Dosage: 300 MG, A DAY
     Route: 048
     Dates: start: 20181210, end: 20181216
  7. PIPERACILLIN SODIUM [Suspect]
     Active Substance: PIPERACILLIN SODIUM
     Indication: HAND FRACTURE
     Dosage: 2 G, UNK
     Route: 042
     Dates: start: 20181211, end: 20181211

REACTIONS (2)
  - Drug reaction with eosinophilia and systemic symptoms [Recovered/Resolved]
  - Atrial flutter [Recovered/Resolved]

NARRATIVE: CASE EVENT DATE: 20181213
